FAERS Safety Report 9406843 (Version 2)
Quarter: 2013Q4

REPORT INFORMATION
  Report Type: Report from Study
  Country: US (occurrence: US)
  Receive Date: 20130718
  Receipt Date: 20131230
  Transmission Date: 20140711
  Serious: Yes (Hospitalization)
  Sender: FDA-Public Use
  Company Number: PHHO2013US009206

PATIENT
  Sex: Female

DRUGS (13)
  1. AFINITOR [Suspect]
     Indication: RENAL CELL CARCINOMA
     Dosage: 10 MG, QD (EVERY MORNING)
     Route: 048
     Dates: start: 20130612
  2. AFINITOR [Suspect]
     Dosage: UNK
     Route: 048
     Dates: end: 20130627
  3. CALTRATE + VITAMIN D [Concomitant]
     Dosage: 600 MG, QD (AT BEDTIME)
     Route: 048
  4. DOCUSATE SODIUM [Concomitant]
     Indication: CONSTIPATION
     Dosage: 100 MG, PRN
     Route: 048
  5. LEVAQUIN [Concomitant]
     Dosage: 500 MG, DAILY
     Route: 048
  6. MARINOL [Concomitant]
     Dosage: 2.5 MG, TID
     Route: 048
  7. OXYCODONE [Concomitant]
     Indication: PAIN
     Dosage: 5 MG, 1-2 TABLETS, EVERY 4 HOURS AS NEEDED
     Route: 048
  8. PHENERGAN                          /00404701/ [Concomitant]
     Indication: NAUSEA
     Dosage: 25 MG, Q6H (AS NEEDED)
     Route: 048
  9. REGLAN                                  /USA/ [Concomitant]
     Dosage: 10 MG, BID (BEFORE MEALS AND AT BED TIME)
     Route: 048
  10. SENOKOT-S [Concomitant]
     Indication: CONSTIPATION
     Dosage: 2 DF, AS NEEDED
     Route: 048
  11. SYNTHROID [Concomitant]
     Dosage: 50 UG, DAILY
     Route: 048
  12. ZOFRON//ONDANSETRON [Concomitant]
     Indication: NAUSEA
     Dosage: 8 MG, Q6H AS NEEDED
     Route: 048
  13. KEPPRA [Concomitant]
     Dosage: 500 MG, BID
     Route: 048

REACTIONS (2)
  - Posterior reversible encephalopathy syndrome [Unknown]
  - Kidney infection [Unknown]
